FAERS Safety Report 10627545 (Version 1)
Quarter: 2014Q4

REPORT INFORMATION
  Report Type: Spontaneous
  Country: US (occurrence: US)
  Receive Date: 20141205
  Receipt Date: 20141205
  Transmission Date: 20150529
  Serious: Yes (Hospitalization)
  Sender: FDA-Public Use
  Company Number: US-GLENMARK GENERICS (EUROPE) LTD-2014GMK012261

PATIENT
  Age: 28 Year
  Sex: Female
  Weight: 81.63 kg

DRUGS (4)
  1. TOPIRAMATE. [Suspect]
     Active Substance: TOPIRAMATE
     Indication: BIPOLAR I DISORDER
     Dosage: 1 DF, QD IN THE MORNING
     Route: 048
     Dates: start: 20140701, end: 20141105
  2. TOPIRAMATE TABLETS 100MG [Suspect]
     Active Substance: TOPIRAMATE
     Indication: BIPOLAR I DISORDER
     Dosage: 1 DF, QD IN THE EVENING
     Dates: start: 20140701, end: 20141105
  3. PRAZOSIN [Concomitant]
     Active Substance: PRAZOSIN
     Indication: POST-TRAUMATIC STRESS DISORDER
     Dosage: UNK
     Dates: start: 20140702, end: 20141105
  4. CLONAZEPAM. [Concomitant]
     Active Substance: CLONAZEPAM
     Indication: POST-TRAUMATIC STRESS DISORDER
     Dosage: 1 DF, TID
     Route: 048
     Dates: start: 201407, end: 20141105

REACTIONS (21)
  - Tooth fracture [Not Recovered/Not Resolved]
  - Tooth disorder [Not Recovered/Not Resolved]
  - Local swelling [Not Recovered/Not Resolved]
  - Bone disorder [Not Recovered/Not Resolved]
  - Tooth fracture [None]
  - Galactorrhoea [Not Recovered/Not Resolved]
  - Gingival swelling [Not Recovered/Not Resolved]
  - Musculoskeletal pain [Not Recovered/Not Resolved]
  - Decreased appetite [Not Recovered/Not Resolved]
  - Product use issue [Not Recovered/Not Resolved]
  - Off label use [None]
  - Pain in extremity [Not Recovered/Not Resolved]
  - Weight decreased [Not Recovered/Not Resolved]
  - Breast pain [Not Recovered/Not Resolved]
  - Chills [Not Recovered/Not Resolved]
  - Visual impairment [Not Recovered/Not Resolved]
  - Pharyngeal oedema [Not Recovered/Not Resolved]
  - Breast discomfort [Not Recovered/Not Resolved]
  - Pyrexia [Not Recovered/Not Resolved]
  - Neck pain [Not Recovered/Not Resolved]
  - Gingival erythema [Not Recovered/Not Resolved]

NARRATIVE: CASE EVENT DATE: 201408
